FAERS Safety Report 23246019 (Version 1)
Quarter: 2023Q4

REPORT INFORMATION
  Report Type: Spontaneous
  Country: FR (occurrence: FR)
  Receive Date: 20231130
  Receipt Date: 20231130
  Transmission Date: 20240110
  Serious: Yes (Hospitalization)
  Sender: FDA-Public Use
  Company Number: None

PATIENT
  Age: 43 Year
  Sex: Male
  Weight: 84 kg

DRUGS (4)
  1. RELPAX [Suspect]
     Active Substance: ELETRIPTAN HYDROBROMIDE
     Indication: Migraine
     Dosage: 40 MILLIGRAM, 1 TOTAL
     Route: 048
     Dates: start: 20231003, end: 20231003
  2. KETOPROFEN [Suspect]
     Active Substance: KETOPROFEN
     Indication: Migraine
     Dosage: 150 MILLIGRAM, 1 TOTAL
     Route: 048
     Dates: start: 20231003, end: 20231003
  3. EMGALITY [Suspect]
     Active Substance: GALCANEZUMAB-GNLM
     Indication: Migraine
     Dosage: 120 MILLIGRAM, MONTHLY
     Route: 058
     Dates: start: 20230404, end: 20231002
  4. AMITRIPTYLINE HYDROCHLORIDE [Suspect]
     Active Substance: AMITRIPTYLINE HYDROCHLORIDE
     Indication: Product used for unknown indication
     Dosage: UNK
     Route: 065

REACTIONS (1)
  - Renal infarct [Recovering/Resolving]

NARRATIVE: CASE EVENT DATE: 20231003
